FAERS Safety Report 4597421-3 (Version None)
Quarter: 2005Q1

REPORT INFORMATION
  Report Type: 
  Country: None (occurrence: None)
  Receive Date: 20050303
  Receipt Date: 20030310
  Transmission Date: 20050727
  Serious: Yes (Hospitalization)
  Sender: FDA-Public Use
  Company Number: PHHO2003NL03270

PATIENT
  Age: 66 Year
  Sex: Male

DRUGS (3)
  1. NEORAL [Suspect]
     Indication: LIVER TRANSPLANT
     Dosage: 600 MG DAILY
     Route: 048
     Dates: start: 20030303, end: 20030306
  2. PREDNISONE [Concomitant]
     Indication: LIVER TRANSPLANT
     Dosage: 20 MG DAILY
     Route: 042
     Dates: start: 20030303
  3. BASILIXIMAB [Concomitant]
     Indication: LIVER TRANSPLANT
     Dosage: 20 MG (DAY 0)
     Route: 042
     Dates: start: 20030303, end: 20030303

REACTIONS (3)
  - ANURIA [None]
  - CARDIAC ARREST [None]
  - PNEUMONIA ASPIRATION [None]
